FAERS Safety Report 19934360 (Version 3)
Quarter: 2021Q4

REPORT INFORMATION
  Report Type: Spontaneous
  Country: US (occurrence: US)
  Receive Date: 20211008
  Receipt Date: 20211210
  Transmission Date: 20220303
  Serious: Yes (Other)
  Sender: FDA-Public Use
  Company Number: US-BAYER-2021A226502

PATIENT
  Age: 7 Year
  Sex: Male

DRUGS (4)
  1. KOGENATE FS [Suspect]
     Active Substance: ANTIHEMOPHILIC FACTOR, HUMAN RECOMBINANT
     Dosage: 2 DF, ONCE
     Dates: start: 20210309, end: 20210309
  2. KOGENATE FS [Suspect]
     Active Substance: ANTIHEMOPHILIC FACTOR, HUMAN RECOMBINANT
     Dosage: 1 DF, ONCE - TO TREAT EVENTS
     Dates: start: 20211031, end: 20211031
  3. KOGENATE FS [Suspect]
     Active Substance: ANTIHEMOPHILIC FACTOR, HUMAN RECOMBINANT
     Dosage: 1 DF, ONCE - TO TREAT EVENTS
     Dates: start: 20211107, end: 20211107
  4. KOGENATE FS [Suspect]
     Active Substance: ANTIHEMOPHILIC FACTOR, HUMAN RECOMBINANT
     Dosage: 1 DF, ONCE - TO TREAT EVENTS
     Dates: start: 20211109, end: 20211109

REACTIONS (4)
  - Wound [None]
  - Head injury [Recovered/Resolved]
  - Wound haemorrhage [Recovered/Resolved]
  - Skin papilloma [None]

NARRATIVE: CASE EVENT DATE: 20210309
